FAERS Safety Report 9291346 (Version 1)
Quarter: 2013Q2

REPORT INFORMATION
  Report Type: Spontaneous
  Country: US (occurrence: US)
  Receive Date: 20130515
  Receipt Date: 20130515
  Transmission Date: 20140414
  Serious: No
  Sender: FDA-Public Use
  Company Number: US-ASTRAZENECA-2010SE50927

PATIENT
  Age: 73 Year
  Sex: Female
  Weight: 77.6 kg

DRUGS (18)
  1. NEXIUM [Suspect]
     Indication: GASTROOESOPHAGEAL REFLUX DISEASE
     Route: 048
     Dates: start: 2004, end: 2011
  2. NEXIUM [Suspect]
     Indication: GASTROOESOPHAGEAL REFLUX DISEASE
     Route: 048
     Dates: start: 2011, end: 20130221
  3. NEXIUM [Suspect]
     Indication: GASTROOESOPHAGEAL REFLUX DISEASE
     Route: 048
     Dates: start: 20130222, end: 20130407
  4. NEXIUM [Suspect]
     Indication: GASTROOESOPHAGEAL REFLUX DISEASE
     Route: 048
     Dates: start: 20130408, end: 20130426
  5. NEXIUM [Suspect]
     Indication: GASTROOESOPHAGEAL REFLUX DISEASE
     Route: 048
     Dates: start: 20130501
  6. OMEPRAZOLE [Suspect]
     Indication: GASTROOESOPHAGEAL REFLUX DISEASE
     Route: 048
     Dates: start: 20130222, end: 20130407
  7. OMEPRAZOLE [Suspect]
     Indication: GASTROOESOPHAGEAL REFLUX DISEASE
     Route: 048
     Dates: start: 20130408, end: 20130426
  8. HCTZ [Concomitant]
     Indication: FLUID RETENTION
     Route: 048
  9. LISINOPRIL [Concomitant]
     Indication: HYPERTENSION
     Route: 048
     Dates: start: 20101021
  10. EVISTA [Concomitant]
     Indication: OSTEOPOROSIS
     Route: 048
  11. HYDROXYL HCL [Concomitant]
     Indication: PRURITUS
     Route: 048
  12. VIT D [Concomitant]
     Route: 048
  13. VIT D [Concomitant]
     Route: 048
  14. MVI [Concomitant]
     Dosage: UNKNOWN DOSE, DAILY
     Route: 048
  15. CALCIUM WITH D [Concomitant]
     Dosage: UNKNOWN DOSE, TWO TIMES A DAY
     Route: 048
  16. BIOTEN [Concomitant]
     Route: 048
  17. B12 [Concomitant]
     Route: 048
  18. GLUCOSAMINE CHONDROTIN [Concomitant]
     Route: 048

REACTIONS (17)
  - Dyspepsia [Unknown]
  - Dyspepsia [Unknown]
  - Barrett^s oesophagus [Unknown]
  - Rash generalised [Not Recovered/Not Resolved]
  - Insomnia [Unknown]
  - Pruritus [Unknown]
  - Alopecia [Unknown]
  - Depressed mood [Not Recovered/Not Resolved]
  - Diarrhoea [Not Recovered/Not Resolved]
  - Abdominal discomfort [Unknown]
  - Diarrhoea [Unknown]
  - Bowel movement irregularity [Unknown]
  - Blood potassium decreased [Unknown]
  - Pain [Recovered/Resolved]
  - Chest pain [Unknown]
  - Aphagia [Unknown]
  - Blood magnesium decreased [Unknown]
